FAERS Safety Report 9581264 (Version 1)
Quarter: 2013Q4

REPORT INFORMATION
  Report Type: Spontaneous
  Country: US (occurrence: US)
  Receive Date: 20131002
  Receipt Date: 20131002
  Transmission Date: 20140711
  Serious: No
  Sender: FDA-Public Use
  Company Number: US-PFIZER INC-2013278673

PATIENT
  Age: 44 Year
  Sex: Male
  Weight: 104 kg

DRUGS (13)
  1. XELJANZ [Suspect]
     Dosage: 5 MG, TAKE 1 TAB TWICE A DAY
     Route: 048
  2. TYLENOL COLD [Concomitant]
     Dosage: UNK
  3. FENOFIBRATE [Concomitant]
     Dosage: 130 MG, UNK
  4. LOSARTAN POTASSIUM [Concomitant]
     Dosage: 100 MG, UNK
  5. CYMBALTA [Concomitant]
     Dosage: 20 MG, UNK
  6. PREDNISONE [Concomitant]
     Dosage: 2.5 MG, UNK
  7. METHOTREXATE [Concomitant]
     Dosage: 25 MG/ML, UNK
  8. ANDROGEL [Concomitant]
     Dosage: UNK
  9. HALOBETASOL CRE [Concomitant]
     Dosage: UNK
  10. FISH OIL [Concomitant]
     Dosage: UNK
  11. FOLIC ACID [Concomitant]
     Dosage: UNK
  12. VITAMIN D3 [Concomitant]
     Dosage: 10000 IU, UNK
  13. NASONEX [Concomitant]
     Dosage: 50 UG, UNK

REACTIONS (1)
  - Joint swelling [Unknown]
